FAERS Safety Report 6866096-2 (Version None)
Quarter: 2010Q3

REPORT INFORMATION
  Report Type: 
  Country: None (occurrence: None)
  Receive Date: 20100722
  Receipt Date: 20100715
  Transmission Date: 20110219
  Serious: Yes (Hospitalization, Other)
  Sender: FDA-Public Use
  Company Number: US-ELI_LILLY_AND_COMPANY-US201005002801

PATIENT
  Sex: Female

DRUGS (2)
  1. HUMALOG [Suspect]
     Indication: DIABETES MELLITUS
     Dosage: UNK, AS NEEDED
     Dates: start: 20070101
  2. LEVEMIR [Concomitant]

REACTIONS (7)
  - BLOOD GLUCOSE DECREASED [None]
  - FLUID IMBALANCE [None]
  - INCORRECT PRODUCT STORAGE [None]
  - MUSCLE ATROPHY [None]
  - NERVOUSNESS [None]
  - PNEUMONIA STAPHYLOCOCCAL [None]
  - RENAL FAILURE CHRONIC [None]
